FAERS Safety Report 10671109 (Version 3)
Quarter: 2015Q1

REPORT INFORMATION
  Report Type: Spontaneous
  Country: US (occurrence: US)
  Receive Date: 20141223
  Receipt Date: 20150126
  Transmission Date: 20150720
  Serious: Yes (Other)
  Sender: FDA-Public Use
  Company Number: US-PFIZER INC-2014350589

PATIENT
  Age: 77 Year
  Sex: Male

DRUGS (5)
  1. METFORMIN [Concomitant]
     Active Substance: METFORMIN HYDROCHLORIDE
     Dosage: UNK
     Dates: start: 2005
  2. QUINAPRIL [Concomitant]
     Active Substance: QUINAPRIL\QUINAPRIL HYDROCHLORIDE
     Dosage: 10 MG, UNK
     Dates: start: 2010
  3. ASPIRIN. [Concomitant]
     Active Substance: ASPIRIN
     Dosage: UNK, 1X/DAY
  4. LYRICA [Suspect]
     Active Substance: PREGABALIN
     Indication: MUSCULOSKELETAL DISORDER
     Dosage: 150, 2X/DAY
     Route: 048
     Dates: start: 2011
  5. OMEPRAZOLE. [Concomitant]
     Active Substance: OMEPRAZOLE
     Dosage: 20 MG, 1X/DAY
     Dates: start: 2012

REACTIONS (1)
  - Pulmonary thrombosis [Recovered/Resolved]
